FAERS Safety Report 5448595-3 (Version None)
Quarter: 2007Q3

REPORT INFORMATION
  Report Type: 
  Country: None (occurrence: None)
  Receive Date: 20070905
  Receipt Date: 20070822
  Transmission Date: 20080115
  Serious: Yes (Hospitalization)
  Sender: FDA-Public Use
  Company Number: CLOF-10591

PATIENT
  Age: 10 Year
  Sex: Male
  Weight: 51 kg

DRUGS (40)
  1. CLOFARABINE. MFR: GENZYME [Suspect]
     Indication: ACUTE LYMPHOCYTIC LEUKAEMIA
     Dosage: 28 MG QD X 5 IV
     Route: 042
     Dates: start: 20060908, end: 20060912
  2. CLOFARABINE. MFR: GENZYME [Suspect]
     Indication: ACUTE LYMPHOCYTIC LEUKAEMIA
     Dosage: 28 MG QD IV
     Route: 042
     Dates: start: 20061013, end: 20061016
  3. CLOFARABINE. MFR: GENZYME [Suspect]
     Indication: ACUTE LYMPHOCYTIC LEUKAEMIA
     Dosage: 29 MG QD IV
     Route: 042
     Dates: start: 20061124, end: 20061127
  4. CLOFARABINE. MFR: GENZYME [Suspect]
     Indication: ACUTE LYMPHOCYTIC LEUKAEMIA
     Dosage: 3 MG QD IV
     Route: 042
     Dates: start: 20061226, end: 20061229
  5. CLOFARABINE. MFR: GENZYME [Suspect]
     Indication: ACUTE LYMPHOCYTIC LEUKAEMIA
     Dosage: 30 MG QD IV
     Route: 042
     Dates: start: 20070131, end: 20070203
  6. CLOFARABINE. MFR: GENZYME [Suspect]
     Indication: ACUTE LYMPHOCYTIC LEUKAEMIA
     Dates: start: 20070320, end: 20070323
  7. CLOFARABINE. MFR: GENZYME [Suspect]
     Indication: ACUTE LYMPHOCYTIC LEUKAEMIA
     Dosage: 29 MG QD IV
     Route: 042
     Dates: start: 20070508, end: 20070511
  8. CLOFARABINE. MFR: GENZYME [Suspect]
     Indication: ACUTE LYMPHOCYTIC LEUKAEMIA
     Dosage: 28 MG QD IV
     Route: 042
     Dates: start: 20070626, end: 20070629
  9. ETOPOSIDE [Suspect]
     Indication: ACUTE LYMPHOCYTIC LEUKAEMIA
     Dosage: 140 MG QD X 5 IV
     Route: 042
     Dates: start: 20060908, end: 20060912
  10. ETOPOSIDE [Suspect]
     Indication: ACUTE LYMPHOCYTIC LEUKAEMIA
     Dosage: 140 MG QD IV
     Route: 042
     Dates: start: 20061013, end: 20061016
  11. ETOPOSIDE [Suspect]
     Indication: ACUTE LYMPHOCYTIC LEUKAEMIA
     Dosage: 145 MG QD IV
     Route: 042
     Dates: start: 20061124, end: 20061127
  12. ETOPOSIDE [Suspect]
     Indication: ACUTE LYMPHOCYTIC LEUKAEMIA
     Dosage: 150 MG QD IV
     Route: 042
     Dates: start: 20061226, end: 20061229
  13. ETOPOSIDE [Suspect]
     Indication: ACUTE LYMPHOCYTIC LEUKAEMIA
     Dosage: 150 MG QD IV
     Route: 042
     Dates: start: 20070131, end: 20070203
  14. ETOPOSIDE [Suspect]
     Indication: ACUTE LYMPHOCYTIC LEUKAEMIA
     Dosage: 145 MG QD IV
     Route: 042
     Dates: start: 20070320, end: 20070323
  15. ETOPOSIDE [Suspect]
     Indication: ACUTE LYMPHOCYTIC LEUKAEMIA
     Dosage: 145 MG QD IV
     Route: 042
     Dates: start: 20070508, end: 20070511
  16. ETOPOSIDE [Suspect]
     Indication: ACUTE LYMPHOCYTIC LEUKAEMIA
     Dosage: 140 MG QD IV
     Route: 042
     Dates: start: 20070626, end: 20070629
  17. CYCLOPHOSPHAMIDE [Suspect]
     Indication: ACUTE LYMPHOCYTIC LEUKAEMIA
     Dosage: 615 MG QD X 5 IV
     Route: 042
     Dates: start: 20060908, end: 20060912
  18. CYCLOPHOSPHAMIDE [Suspect]
     Indication: ACUTE LYMPHOCYTIC LEUKAEMIA
     Dosage: 620 MG QD IV
     Route: 042
     Dates: start: 20061013, end: 20061016
  19. CYCLOPHOSPHAMIDE [Suspect]
     Indication: ACUTE LYMPHOCYTIC LEUKAEMIA
     Dosage: 640 MG QD IV
     Route: 042
     Dates: start: 20061124, end: 20061127
  20. CYCLOPHOSPHAMIDE [Suspect]
     Indication: ACUTE LYMPHOCYTIC LEUKAEMIA
     Dosage: 655 MG QD IV
     Route: 042
     Dates: start: 20061226, end: 20061229
  21. CYCLOPHOSPHAMIDE [Suspect]
     Indication: ACUTE LYMPHOCYTIC LEUKAEMIA
     Dosage: 650 MG QD IV
     Route: 042
     Dates: start: 20070131, end: 20070203
  22. CYCLOPHOSPHAMIDE [Suspect]
     Indication: ACUTE LYMPHOCYTIC LEUKAEMIA
     Dates: start: 20070320, end: 20070323
  23. CYCLOPHOSPHAMIDE [Suspect]
     Indication: ACUTE LYMPHOCYTIC LEUKAEMIA
     Dosage: 630 MG QD IV
     Route: 042
     Dates: start: 20070508, end: 20070511
  24. CYCLOPHOSPHAMIDE [Suspect]
     Indication: ACUTE LYMPHOCYTIC LEUKAEMIA
     Dosage: 620 MG QD IV
     Route: 042
     Dates: start: 20070626, end: 20070629
  25. FLUCONAZOLE [Concomitant]
  26. GABAPENTIN [Concomitant]
  27. BACTRIM. MFR: HOFFMAN-LA ROCHE, INC. [Concomitant]
  28. VALACYCLOVIR [Concomitant]
  29. BISACODYL [Concomitant]
  30. NASONEX. MFR: SCHERING-PLOUGH [Concomitant]
  31. DOCUSATE-SENNA [Concomitant]
  32. ARTIFICIAL TEARS [Concomitant]
  33. NORTRIPTYLINE HCL [Concomitant]
  34. ERYTHROMYCIN OPHTHALMIC [Concomitant]
  35. CIPROFLOXACIN OPHTHALMIC [Concomitant]
  36. AUGMENTIN. MFR: SMITH KLINE BEECHAM [Concomitant]
  37. METHADONE HCL [Concomitant]
  38. MIRALAX. MFR: BRAINTREE [Concomitant]
  39. LACRILUBE OPTHALMIC [Concomitant]
  40. NEUPOGEN [Concomitant]

REACTIONS (36)
  - ATELECTASIS [None]
  - BACTERAEMIA [None]
  - BLISTER [None]
  - BLOOD FIBRINOGEN INCREASED [None]
  - CAECITIS [None]
  - CONSTIPATION [None]
  - ECHOCARDIOGRAM ABNORMAL [None]
  - ENTEROCOCCAL INFECTION [None]
  - ENTROPION [None]
  - EYE IRRITATION [None]
  - EYE SWELLING [None]
  - FEBRILE NEUTROPENIA [None]
  - FUNGAL INFECTION [None]
  - HAEMATEMESIS [None]
  - HAEMOGLOBIN DECREASED [None]
  - HEADACHE [None]
  - HEPATIC LESION [None]
  - HEPATIC STEATOSIS [None]
  - HEPATITIS [None]
  - LUNG INFECTION [None]
  - MUSCULOSKELETAL PAIN [None]
  - NEUTROPENIC COLITIS [None]
  - PATHOGEN RESISTANCE [None]
  - PLATELET COUNT DECREASED [None]
  - PNEUMONITIS [None]
  - POOR QUALITY SLEEP [None]
  - PRURITUS [None]
  - PULMONARY CALCIFICATION [None]
  - RHINORRHOEA [None]
  - SINUS DISORDER [None]
  - SKIN LESION [None]
  - STAPHYLOCOCCAL INFECTION [None]
  - STREPTOCOCCAL INFECTION [None]
  - TENDERNESS [None]
  - VOMITING [None]
  - WHITE BLOOD CELL COUNT DECREASED [None]
